FAERS Safety Report 4959922-5 (Version None)
Quarter: 2006Q1

REPORT INFORMATION
  Report Type: 
  Country: None (occurrence: None)
  Receive Date: 20060331
  Receipt Date: 20051103
  Transmission Date: 20060701
  Serious: Yes (Hospitalization, Disabling)
  Sender: FDA-Public Use
  Company Number: US-MERCK-0511USA00604

PATIENT
  Age: 48 Year
  Sex: Female
  Weight: 76 kg

DRUGS (17)
  1. VIOXX [Suspect]
     Indication: PAIN
     Route: 048
     Dates: start: 20000101, end: 20040101
  2. VIOXX [Suspect]
     Indication: SURGERY
     Route: 048
     Dates: start: 20000101, end: 20040101
  3. AMBIEN [Concomitant]
     Route: 065
  4. PROVENTIL [Concomitant]
     Route: 065
  5. MEDROL [Concomitant]
     Route: 065
  6. CLARITIN-D [Concomitant]
     Route: 065
  7. FLONASE [Concomitant]
     Route: 065
  8. PREDNISONE [Concomitant]
     Route: 065
  9. SINGULAIR [Concomitant]
     Route: 048
  10. ADVAIR DISKUS 100/50 [Concomitant]
     Route: 065
  11. ZITHROMAX [Concomitant]
     Route: 065
  12. AUGMENTIN '125' [Concomitant]
     Route: 065
  13. CIPRO [Concomitant]
     Route: 065
  14. BIAXIN [Concomitant]
     Route: 065
  15. PEN-VEE K [Concomitant]
     Route: 065
  16. CEFZIL [Concomitant]
     Route: 065
  17. HYDROMET (HOMATROPINE METHYLBROMIDE (+) HYDROCODONE BITARTRATE) [Concomitant]
     Route: 065

REACTIONS (5)
  - BACK INJURY [None]
  - CEREBROVASCULAR ACCIDENT [None]
  - CHEST PAIN [None]
  - INSOMNIA [None]
  - LUMBAR SPINAL STENOSIS [None]
